FAERS Safety Report 10671279 (Version 1)
Quarter: 2014Q4

REPORT INFORMATION
  Report Type: Spontaneous
  Country: US (occurrence: None)
  Receive Date: 20141219
  Receipt Date: 20141219
  Transmission Date: 20150529
  Serious: Yes (Hospitalization)
  Sender: FDA-Public Use
  Company Number: 2014SA170837

PATIENT
  Age: 35 Year
  Sex: Female

DRUGS (7)
  1. DIPHENHYDRAMINE [Suspect]
     Active Substance: DIPHENHYDRAMINE
     Indication: PRODUCT USED FOR UNKNOWN INDICATION
  2. BUPROPION [Concomitant]
     Active Substance: BUPROPION
  3. LORAZEPAM. [Concomitant]
     Active Substance: LORAZEPAM
  4. CLOMIFENE CITRATE [Suspect]
     Active Substance: CLOMIPHENE
     Indication: OVULATION INDUCTION
  5. HALOPERIDOL. [Suspect]
     Active Substance: HALOPERIDOL
     Indication: PRODUCT USED FOR UNKNOWN INDICATION
  6. LAMOTRIGINE. [Concomitant]
     Active Substance: LAMOTRIGINE
  7. CLONAZEPAM. [Concomitant]
     Active Substance: CLONAZEPAM

REACTIONS (22)
  - Energy increased [None]
  - Speech disorder [None]
  - Dysphemia [None]
  - Aphasia [None]
  - Hypophagia [None]
  - Delirium [None]
  - Hypersexuality [None]
  - Crying [None]
  - Persecutory delusion [None]
  - Disturbance in attention [None]
  - Aggression [None]
  - Insomnia [None]
  - Thinking abnormal [None]
  - Echolalia [None]
  - Mood swings [None]
  - Anger [None]
  - Confusional state [None]
  - Disorientation [None]
  - Distractibility [None]
  - Mania [None]
  - Intentional self-injury [None]
  - Blood potassium decreased [None]
